FAERS Safety Report 8259025-0 (Version None)
Quarter: 2012Q2

REPORT INFORMATION
  Report Type: 
  Country: None (occurrence: None)
  Receive Date: 20120404
  Receipt Date: 20120329
  Transmission Date: 20120825
  Serious: Yes (Other)
  Sender: FDA-Public Use
  Company Number: US-PFIZER INC-2012081242

PATIENT
  Sex: Female
  Weight: 81.633 kg

DRUGS (3)
  1. PRISTIQ [Suspect]
     Indication: ANXIETY
     Dosage: 100 MG, UNK
     Dates: start: 20100101, end: 20120325
  2. PRISTIQ [Suspect]
     Indication: DEPRESSION
  3. METOPROLOL [Concomitant]
     Indication: HEART RATE ABNORMAL
     Dosage: 25 MG, 2X/DAY

REACTIONS (3)
  - NAUSEA [None]
  - MALAISE [None]
  - VERTIGO [None]
